FAERS Safety Report 9140706 (Version 1)
Quarter: 2013Q1

REPORT INFORMATION
  Report Type: Spontaneous
  Country: DE (occurrence: DE)
  Receive Date: 20130305
  Receipt Date: 20130305
  Transmission Date: 20140127
  Serious: Yes (Other)
  Sender: FDA-Public Use
  Company Number: DE-009507513-1303DEU000830

PATIENT
  Age: 30 Month
  Sex: Male

DRUGS (1)
  1. SINGULAIR [Suspect]
     Dosage: UNK
     Route: 048
     Dates: end: 201212

REACTIONS (4)
  - Febrile convulsion [Unknown]
  - Chills [Unknown]
  - Nightmare [Unknown]
  - Hallucination [Unknown]
